FAERS Safety Report 16557930 (Version 7)
Quarter: 2019Q4

REPORT INFORMATION
  Report Type: Report from Study
  Country: CA (occurrence: CA)
  Receive Date: 20190711
  Receipt Date: 20191122
  Transmission Date: 20200122
  Serious: Yes (Other)
  Sender: FDA-Public Use
  Company Number: PHHY2019CA158472

PATIENT
  Age: 81 Year
  Sex: Female

DRUGS (3)
  1. COSENTYX [Suspect]
     Active Substance: SECUKINUMAB
     Indication: PSORIATIC ARTHROPATHY
     Dosage: 300 MG, QMO
     Route: 058
     Dates: start: 20190517
  2. COSENTYX [Suspect]
     Active Substance: SECUKINUMAB
     Dosage: 300 MG, QMO
     Route: 058
     Dates: start: 20190721
  3. COSENTYX [Suspect]
     Active Substance: SECUKINUMAB
     Dosage: 300 MG, QMO
     Route: 058
     Dates: start: 20191008

REACTIONS (14)
  - Arthralgia [Unknown]
  - Musculoskeletal stiffness [Unknown]
  - Psoriatic arthropathy [Unknown]
  - Secretion discharge [Recovered/Resolved]
  - Joint swelling [Unknown]
  - Pain [Recovered/Resolved]
  - Gastrointestinal infection [Unknown]
  - Diverticulitis [Recovering/Resolving]
  - Flatulence [Not Recovered/Not Resolved]
  - Fungal infection [Recovered/Resolved]
  - Pruritus [Unknown]
  - Joint warmth [Unknown]
  - Urinary tract infection [Unknown]
  - Diarrhoea [Recovering/Resolving]

NARRATIVE: CASE EVENT DATE: 20190702
